FAERS Safety Report 20373779 (Version 3)
Quarter: 2022Q1

REPORT INFORMATION
  Report Type: Report from Study
  Country: US (occurrence: US)
  Receive Date: 20220125
  Receipt Date: 20220206
  Transmission Date: 20220423
  Serious: No
  Sender: FDA-Public Use
  Company Number: US-NOVARTISTESTPH-NVSC2022US015401

PATIENT
  Sex: Female

DRUGS (1)
  1. PIQRAY [Suspect]
     Active Substance: ALPELISIB
     Indication: Breast cancer female
     Dosage: 200 MG, QD
     Route: 048

REACTIONS (5)
  - Malaise [Unknown]
  - Poor quality sleep [Unknown]
  - Pain [Unknown]
  - Headache [Unknown]
  - Product dose omission issue [Unknown]
